FAERS Safety Report 24367202 (Version 2)
Quarter: 2024Q4

REPORT INFORMATION
  Report Type: Spontaneous
  Country: US (occurrence: US)
  Receive Date: 20240926
  Receipt Date: 20241011
  Transmission Date: 20250115
  Serious: Yes (Hospitalization)
  Sender: CYCLE PHARMACEUTICALS
  Company Number: US-CYCLE PHARMACEUTICALS LTD-2024-CYC-000094

PATIENT

DRUGS (2)
  1. NITYR [Suspect]
     Active Substance: NITISINONE
     Indication: Tyrosinaemia
     Dosage: 12 MG, QD
     Route: 048
     Dates: start: 202305, end: 202409
  2. NITYR [Suspect]
     Active Substance: NITISINONE
     Indication: Tyrosinaemia
     Dosage: 12 MG, QD
     Route: 048
     Dates: start: 202305, end: 202409

REACTIONS (1)
  - Liver transplant [Unknown]

NARRATIVE: CASE EVENT DATE: 20240919
